FAERS Safety Report 25681238 (Version 2)
Quarter: 2025Q4

REPORT INFORMATION
  Report Type: Spontaneous
  Country: JP (occurrence: JP)
  Receive Date: 20250814
  Receipt Date: 20251013
  Transmission Date: 20260118
  Serious: Yes (Hospitalization, Other)
  Sender: AMGEN
  Company Number: JP-KYOWAKIRIN-2025KK013114

PATIENT
  Age: 64 Year
  Sex: Female

DRUGS (12)
  1. PEGFILGRASTIM [Suspect]
     Active Substance: PEGFILGRASTIM
     Indication: Colony stimulating factor therapy
     Dosage: 3.6 MG
     Route: 058
     Dates: start: 20250619, end: 20250619
  2. DOCETAXEL [Concomitant]
     Active Substance: DOCETAXEL
     Indication: Breast cancer
     Dosage: 110MG OR 100MG, 1X/3 WEEKS
     Route: 042
     Dates: start: 20250617, end: 20250827
  3. DEXAMETHASONE SODIUM PHOSPHATE [Concomitant]
     Active Substance: DEXAMETHASONE SODIUM PHOSPHATE
     Indication: Breast cancer
     Dosage: 9.9 MG, 1X/3 WEEKS
     Route: 042
     Dates: start: 20250617, end: 20250827
  4. PALONOSETRON [Concomitant]
     Active Substance: PALONOSETRON
     Indication: Breast cancer
     Dosage: 0.75 MG, 1X/3 WEEKS
     Route: 042
     Dates: start: 20250617, end: 20250827
  5. CYCLOPHOSPHAMIDE [Concomitant]
     Active Substance: CYCLOPHOSPHAMIDE
     Indication: Breast cancer
     Dosage: 880MG OR 800MG, 1X/3 WEEKS
     Route: 042
     Dates: start: 20250617, end: 20250827
  6. ESOMEPRAZOLE [Concomitant]
     Active Substance: ESOMEPRAZOLE
     Indication: Vomiting
     Dosage: 20 MG, 5 DAYS EVERY 3 WEEKS
     Route: 048
     Dates: start: 20250617, end: 20250831
  7. DECADRON [Concomitant]
     Active Substance: DEXAMETHASONE
     Indication: Vomiting
     Dosage: 8 MG, 2 DAYS EVERY 3 WEEKS
     Route: 048
     Dates: start: 20250618, end: 20250829
  8. OLANZAPINE [Concomitant]
     Active Substance: OLANZAPINE
     Indication: Vomiting
     Dosage: 5 MG,1 OR 2 DAYS EVERY 3 WEEKS
     Route: 048
     Dates: start: 20250618, end: 20250829
  9. PRIMPERAN [Concomitant]
     Active Substance: METOCLOPRAMIDE HYDROCHLORIDE
     Indication: Vomiting
     Dosage: 5 MG, PRN
     Route: 048
     Dates: start: 20250618
  10. APREPITANT [Concomitant]
     Active Substance: APREPITANT
     Indication: Vomiting
     Dosage: 125MG OR 80MG, 3 DAYS EVERY 3 WEEKS
     Route: 048
     Dates: start: 20250709, end: 20250829
  11. DICLOFENAC SODIUM [Concomitant]
     Active Substance: DICLOFENAC SODIUM
     Indication: Product used for unknown indication
     Dosage: 25 MG
     Route: 048
     Dates: start: 20250625
  12. REBAMIPIDE [Concomitant]
     Active Substance: REBAMIPIDE
     Indication: Product used for unknown indication
     Dosage: 100 MG
     Route: 048
     Dates: start: 20250625

REACTIONS (2)
  - Aortitis [Recovered/Resolved]
  - Decreased appetite [Unknown]

NARRATIVE: CASE EVENT DATE: 20250630
